FAERS Safety Report 4560027-6 (Version None)
Quarter: 2005Q1

REPORT INFORMATION
  Report Type: 
  Country: None (occurrence: None)
  Receive Date: 20050125
  Receipt Date: 20050113
  Transmission Date: 20050727
  Serious: Yes (Other)
  Sender: FDA-Public Use
  Company Number: US-JNJFOC-20050103404

PATIENT
  Sex: Male
  Weight: 58.97 kg

DRUGS (16)
  1. INFLIXIMAB [Suspect]
     Indication: RHEUMATOID ARTHRITIS
     Route: 042
  2. ARAVA [Concomitant]
  3. MULTI-VITAMIN [Concomitant]
  4. MULTI-VITAMIN [Concomitant]
  5. MULTI-VITAMIN [Concomitant]
  6. MULTI-VITAMIN [Concomitant]
  7. MULTI-VITAMIN [Concomitant]
  8. MULTI-VITAMIN [Concomitant]
  9. MULTI-VITAMIN [Concomitant]
  10. MULTI-VITAMIN [Concomitant]
  11. TRAZODONE HCL [Concomitant]
  12. FOLIC ACID [Concomitant]
  13. CALCIUM GLUCONATE [Concomitant]
  14. PREDNISONE [Concomitant]
  15. LANSOPRAZOLE [Concomitant]
  16. TYLENOL W/ CODEINE NO. 3 [Concomitant]

REACTIONS (1)
  - MALIGNANT MELANOMA [None]
